FAERS Safety Report 5393759-0 (Version None)
Quarter: 2007Q3

REPORT INFORMATION
  Report Type: 
  Country: None (occurrence: None)
  Receive Date: 20070719
  Receipt Date: 20070719
  Transmission Date: 20080115
  Serious: Yes (Hospitalization)
  Sender: FDA-Public Use
  Company Number: None

PATIENT
  Sex: Female
  Weight: 56 kg

DRUGS (3)
  1. CISPLATIN [Suspect]
     Dosage: 78 MG
  2. DOXORUBICIN HYDROCHLORIDE [Suspect]
     Dosage: 70 MG
  3. TAXOL [Suspect]
     Dosage: 248 MG

REACTIONS (7)
  - ASTHENIA [None]
  - DYSPHAGIA [None]
  - NAUSEA [None]
  - ODYNOPHAGIA [None]
  - ORAL INTAKE REDUCED [None]
  - PANCYTOPENIA [None]
  - VOMITING [None]
